FAERS Safety Report 19737240 (Version 1)
Quarter: 2021Q3

REPORT INFORMATION
  Report Type: Spontaneous
  Country: US (occurrence: US)
  Receive Date: 20210824
  Receipt Date: 20210824
  Transmission Date: 20211014
  Serious: No
  Sender: FDA-Public Use
  Company Number: US-SAGE-2021SAGE000075

PATIENT
  Age: 22 Year
  Sex: Female

DRUGS (1)
  1. ZULRESSO [Suspect]
     Active Substance: BREXANOLONE
     Indication: PERINATAL DEPRESSION
     Dosage: UNK
     Route: 042
     Dates: start: 20210804, end: 20210807

REACTIONS (1)
  - Self-injurious ideation [Unknown]

NARRATIVE: CASE EVENT DATE: 202108
